FAERS Safety Report 8879053 (Version 1)
Quarter: 2012Q4

REPORT INFORMATION
  Report Type: Spontaneous
  Country: FR (occurrence: None)
  Receive Date: 20121025
  Receipt Date: 20121025
  Transmission Date: 20130627
  Serious: Yes (Life-Threatening, Hospitalization, Other)
  Sender: FDA-Public Use
  Company Number: VAL_00938_2012

PATIENT
  Age: 27 Year
  Sex: Female

DRUGS (2)
  1. PARLODEL [Suspect]
     Indication: SUPPRESSED LACTATION
     Route: 048
     Dates: start: 20120825, end: 20120827
  2. TRIMEBUTINE [Concomitant]

REACTIONS (24)
  - Myocardial infarction [None]
  - Brain hypoxia [None]
  - Syncope [None]
  - Flushing [None]
  - Asthenia [None]
  - Amnesia [None]
  - Quadriplegia [None]
  - Visual acuity reduced [None]
  - Aspartate aminotransferase increased [None]
  - Alanine aminotransferase increased [None]
  - Gamma-glutamyltransferase increased [None]
  - Blood creatine phosphokinase increased [None]
  - Anaemia [None]
  - Myoglobin blood increased [None]
  - Hyperfibrinogenaemia [None]
  - Blood thyroid stimulating hormone increased [None]
  - Blood bilirubin increased [None]
  - Mydriasis [None]
  - Mitral valve incompetence [None]
  - Tricuspid valve incompetence [None]
  - Pericardial effusion [None]
  - Pleural effusion [None]
  - Heart rate increased [None]
  - Anosognosia [None]
